FAERS Safety Report 8174662 (Version 10)
Quarter: 2012Q4

REPORT INFORMATION
  Report Type: 
  Country: US (occurrence: US)
  Receive Date: 20111010
  Receipt Date: 20120905
  Transmission Date: 20130627
  Serious: Yes (Hospitalization, Other)
  Sender: FDA-Public Use
  Company Number: US-MERCK-1110USA00940

PATIENT
  Age: 70 None

DRUGS (4)
  1. FOSAMAX [Suspect]
     Indication: OSTEOPOROSIS
     Dosage: 70 mg, QW
     Route: 048
     Dates: start: 1998, end: 20090926
  2. LIPITOR [Concomitant]
     Route: 048
  3. MK-9378 [Concomitant]
     Route: 048
  4. FOSAMAX [Suspect]
     Indication: OSTEOPOROSIS
     Dosage: 70 mg, QW
     Route: 048
     Dates: start: 20071126, end: 200809

REACTIONS (43)
  - Femur fracture [Unknown]
  - Femur fracture [Not Recovered/Not Resolved]
  - Herpes zoster [Unknown]
  - Bone disorder [Unknown]
  - Carpal tunnel syndrome [Unknown]
  - Fracture nonunion [Unknown]
  - Hypertension [Unknown]
  - Type 2 diabetes mellitus [Unknown]
  - Urinary tract infection [Unknown]
  - Femur fracture [Recovered/Resolved]
  - Fall [Unknown]
  - Muscle strain [Not Recovered/Not Resolved]
  - Fall [Unknown]
  - Fractured coccyx [Unknown]
  - Device failure [Unknown]
  - Osteoarthritis [Unknown]
  - Weight increased [Unknown]
  - Flatulence [Unknown]
  - Dysphagia [Unknown]
  - Uterine disorder [Unknown]
  - Sensation of foreign body [Unknown]
  - Parkinsonism [Unknown]
  - Amyotrophic lateral sclerosis [Unknown]
  - Dizziness [Unknown]
  - Anxiety [Unknown]
  - Stress [Unknown]
  - Vitamin A increased [Unknown]
  - Cataract [Unknown]
  - Coronary artery disease [Unknown]
  - Dizziness [Unknown]
  - Cardiac murmur [Unknown]
  - Sleep disorder [Unknown]
  - Vitamin D deficiency [Unknown]
  - Mixed incontinence [Unknown]
  - Rotator cuff syndrome [Unknown]
  - Depression [Unknown]
  - Osteopenia [Unknown]
  - Spondylolisthesis [Unknown]
  - Lumbar spinal stenosis [Unknown]
  - Stress fracture [Unknown]
  - Hypercholesterolaemia [Unknown]
  - Intramedullary rod insertion [Unknown]
  - Fall [Unknown]
